FAERS Safety Report 6924245-1 (Version None)
Quarter: 2010Q3

REPORT INFORMATION
  Report Type: 
  Country: None (occurrence: None)
  Receive Date: 20100811
  Receipt Date: 20100811
  Transmission Date: 20110219
  Serious: No
  Sender: FDA-Public Use
  Company Number: None

PATIENT
  Sex: Male
  Weight: 67 kg

DRUGS (4)
  1. DEXAMETHASONE [Suspect]
     Dosage: 59.5 MG
     Dates: end: 20100804
  2. DOXORUBICIN HYDROCHLORIDE [Suspect]
     Dosage: 44MG
     Dates: end: 20100802
  3. METHOTREXATE [Suspect]
     Dosage: 15 MG
     Dates: end: 20100802
  4. VINCRISTINE SULFATE [Suspect]
     Dosage: 2 MG
     Dates: end: 20100802

REACTIONS (1)
  - BLOOD GLUCOSE INCREASED [None]
